FAERS Safety Report 9947756 (Version 2)
Quarter: 2014Q1

REPORT INFORMATION
  Report Type: Report from Study
  Country: PR (occurrence: PR)
  Receive Date: 20140303
  Receipt Date: 20140303
  Transmission Date: 20141002
  Serious: No
  Sender: FDA-Public Use
  Company Number: PR-ABBVIE-12P-131-0893359-00

PATIENT
  Age: 64 Year
  Sex: Female
  Weight: 77.63 kg

DRUGS (10)
  1. HUMIRA 40 MG/0.8 ML PEN [Suspect]
     Indication: RHEUMATOID ARTHRITIS
     Route: 058
     Dates: start: 2010
  2. HUMIRA 40 MG/0.8 ML PEN [Suspect]
     Route: 058
     Dates: end: 201206
  3. HUMIRA 40 MG/0.8 ML PEN [Suspect]
     Route: 058
  4. PREDNISONE [Concomitant]
     Indication: ASTHMA
     Dosage: DAILY
     Route: 048
  5. ALBUTEROL SULFATE [Concomitant]
     Indication: ASTHMA
  6. ALBUTEROL [Concomitant]
     Indication: ASTHMA
     Route: 055
  7. CARTIA [Concomitant]
     Indication: HYPERTENSION
     Dosage: DAILY
     Route: 048
  8. OXYBUTYNIN [Concomitant]
     Indication: HYPERTONIC BLADDER
     Dosage: DAILY
     Route: 048
  9. BENADRYL [Concomitant]
     Indication: HYPERSENSITIVITY
  10. ZYRTEC [Concomitant]
     Indication: HYPERSENSITIVITY
     Route: 048

REACTIONS (2)
  - Nasopharyngitis [Recovered/Resolved]
  - Nasopharyngitis [Recovered/Resolved]
